FAERS Safety Report 6155844-5 (Version None)
Quarter: 2009Q2

REPORT INFORMATION
  Report Type: 
  Country: None (occurrence: None)
  Receive Date: 20090413
  Receipt Date: 20090413
  Transmission Date: 20091009
  Serious: Yes (Hospitalization)
  Sender: FDA-Public Use
  Company Number: None

PATIENT
  Sex: Male
  Weight: 106.6 kg

DRUGS (7)
  1. DECITABINE [Suspect]
     Indication: MYELODYSPLASTIC SYNDROME
     Dosage: 20MG/M2 QD DAYS 1-5 CYCLE 1 DAY 1
     Dates: start: 20080804
  2. ARSENIC TRIOXIDE [Suspect]
     Dosage: 0.1 MG/KG QD DAYS 1-5, 8, 15, 22
  3. ASCORBIC ACID [Suspect]
     Dosage: 100 MG QD DAYS 1-5, 8, 15, 22
  4. NEXIUM [Concomitant]
  5. PAXIL [Concomitant]
  6. GLYBURIDE [Concomitant]
  7. ACYCLOVIR [Concomitant]

REACTIONS (6)
  - AEROMONA INFECTION [None]
  - BLOOD CULTURE POSITIVE [None]
  - CHILLS [None]
  - NAUSEA [None]
  - NEUTROPHIL COUNT DECREASED [None]
  - PYREXIA [None]
